FAERS Safety Report 12466158 (Version 1)
Quarter: 2016Q2

REPORT INFORMATION
  Report Type: Spontaneous
  Country: CZ (occurrence: CZ)
  Receive Date: 20160531
  Receipt Date: 20160531
  Transmission Date: 20160815
  Serious: Yes (Other)
  Sender: FDA-Public Use
  Company Number: CZ-TEVA-662266ISR

PATIENT
  Age: 46 Year
  Sex: Male

DRUGS (5)
  1. LEUCOVORINE [Suspect]
     Active Substance: LEUCOVORIN
     Indication: PANCREATIC CARCINOMA METASTATIC
     Dosage: 400 MG/M2 ON DAY 1, WITH 25% DOSE REDUCTION
     Route: 042
  2. 5-FLUOROURACIL [Suspect]
     Active Substance: FLUOROURACIL
     Indication: PANCREATIC CARCINOMA METASTATIC
     Dosage: 400 MG/M2 ON DAY 1, WITH 25% DOSE REDUCTION.
     Route: 040
  3. IRINOTECAN [Suspect]
     Active Substance: IRINOTECAN
     Indication: PANCREATIC CARCINOMA METASTATIC
     Dosage: 180 MG/M2 ON DAY 1, WITH 25% DOSE REDUCTION
     Route: 042
  4. OXALIPLATIN. [Suspect]
     Active Substance: OXALIPLATIN
     Indication: PANCREATIC CARCINOMA METASTATIC
     Dosage: 85MG/M2 ON DAY 1, WITH 25% DOSE REDUCTION
     Route: 042
  5. 5-FLUOROURACIL [Suspect]
     Active Substance: FLUOROURACIL
     Indication: PANCREATIC CARCINOMA METASTATIC
     Dosage: 2,400 MG/M2 ON DAY 1, 46 HOURS CONTINUOUSLY FOR 14 DAYS, WITH 25% DOSE REDUCTION
     Route: 040

REACTIONS (2)
  - Peritonitis [Unknown]
  - Septic shock [Unknown]
